FAERS Safety Report 15701429 (Version 2)
Quarter: 2018Q4

REPORT INFORMATION
  Report Type: Spontaneous
  Country: US (occurrence: US)
  Receive Date: 20181207
  Receipt Date: 20181226
  Transmission Date: 20190205
  Serious: No
  Sender: FDA-Public Use
  Company Number: PHEH2018US050666

PATIENT
  Sex: Female

DRUGS (1)
  1. CHOLESTYRAMINE FOR ORAL SUSPENSION USP [Suspect]
     Active Substance: CHOLESTYRAMINE
     Indication: PRODUCT USED FOR UNKNOWN INDICATION
     Dosage: UNK UNK, BID
     Route: 065

REACTIONS (1)
  - Skin odour abnormal [Unknown]
